FAERS Safety Report 7048986-3 (Version None)
Quarter: 2010Q4

REPORT INFORMATION
  Report Type: 
  Country: None (occurrence: None)
  Receive Date: 20101018
  Receipt Date: 20101004
  Transmission Date: 20110411
  Serious: Yes (Other)
  Sender: FDA-Public Use
  Company Number: PHHY2010US66008

PATIENT
  Sex: Male

DRUGS (7)
  1. EXJADE [Suspect]
     Indication: IRON OVERLOAD
     Dosage: 625 MG, QD
     Dates: start: 20090801, end: 20090828
  2. HYDROXYUREA [Interacting]
     Indication: SICKLE CELL ANAEMIA
     Dosage: 700 MG, QD
     Route: 048
     Dates: start: 20050601, end: 20090801
  3. NORVASC [Concomitant]
     Indication: HYPERTENSION
     Dosage: 5 MG, BID
     Route: 048
     Dates: start: 20040801
  4. AMOXIL [Concomitant]
     Indication: INFECTION PROPHYLAXIS
     Dosage: 250 MG, BID
     Route: 048
     Dates: start: 19951101
  5. ASPIRIN [Concomitant]
     Indication: ISCHAEMIC HEART DISEASE PROPHYLAXIS
     Dosage: 81 MG, QD
     Route: 048
     Dates: start: 20040801
  6. TOPAMAX [Concomitant]
     Indication: CONVULSION
     Dosage: UNK
     Route: 048
  7. TRANSFUSIONS [Concomitant]
     Dosage: UNK
     Dates: start: 20040201

REACTIONS (5)
  - HEPATIC FIBROSIS [None]
  - HEPATOTOXICITY [None]
  - HYPERBILIRUBINAEMIA [None]
  - HYPOGLYCAEMIA [None]
  - TRANSAMINASES INCREASED [None]
